FAERS Safety Report 23763996 (Version 3)
Quarter: 2024Q3

REPORT INFORMATION
  Report Type: Spontaneous
  Country: US (occurrence: US)
  Receive Date: 20240419
  Receipt Date: 20240710
  Transmission Date: 20241017
  Serious: Yes (Hospitalization, Other)
  Sender: ALEXION PHARMACEUTICALS
  Company Number: US-ALXN-202404USA001182US

PATIENT
  Age: 62 Year
  Sex: Male
  Weight: 101.8 kg

DRUGS (1)
  1. ULTOMIRIS [Suspect]
     Active Substance: RAVULIZUMAB-CWVZ
     Indication: Product used for unknown indication
     Dosage: UNK
     Route: 065

REACTIONS (6)
  - Seroma [Recovered/Resolved]
  - Staphylococcal infection [Unknown]
  - Pseudomonas infection [Unknown]
  - Perinephric collection [Recovered/Resolved with Sequelae]
  - Blood creatinine increased [Unknown]
  - Platelet count decreased [Unknown]

NARRATIVE: CASE EVENT DATE: 20240408
